FAERS Safety Report 7016780-5 (Version None)
Quarter: 2010Q3

REPORT INFORMATION
  Report Type: 
  Country: None (occurrence: None)
  Receive Date: 20100909
  Receipt Date: 20100616
  Transmission Date: 20110219
  Serious: No
  Sender: FDA-Public Use
  Company Number: 2010SP034101

PATIENT
  Age: 52 Year
  Sex: Female

DRUGS (23)
  1. SAPHRIS [Suspect]
     Indication: BIPOLAR DISORDER
     Dosage: 5 MG;BID;SL
     Route: 060
     Dates: start: 20100601, end: 20100614
  2. LUNESTA (CON.) [Concomitant]
  3. RESTASIS (CON.) [Concomitant]
  4. HALOPERIDOL (CON.) [Concomitant]
  5. SIMVASTATIN (CON.) [Concomitant]
  6. MACROGOL (CON.) [Concomitant]
  7. BONIVA (CON.) [Concomitant]
  8. ACIPHEX (CON.) [Concomitant]
  9. FLUDROCORTISONE (CON.) [Concomitant]
  10. VICODIN (CON.) [Concomitant]
  11. TRIMETHOBENZAMIDE (CON.) [Concomitant]
  12. VENLAFAXINE (CON.) [Concomitant]
  13. LAMOTRIGINE (CON.) [Concomitant]
  14. BUSPIRONE HYDROCHLORIDE (CON.) [Concomitant]
  15. ZOMIG (CON.) [Concomitant]
  16. ALPRAZOLAME (CON.) [Concomitant]
  17. ROPINIROLE HYDROCHLORIDE (CON.) [Concomitant]
  18. TRAZODONE (CON.) [Concomitant]
  19. LITHIUM (CON.) [Concomitant]
  20. SEROQUEL (CON.) [Concomitant]
  21. FLUZONE (CON.) [Concomitant]
  22. LEXAPRO (CON.) [Concomitant]
  23. MORPHINE (CON.) [Concomitant]

REACTIONS (4)
  - MOVEMENT DISORDER [None]
  - MUSCLE SPASMS [None]
  - MYALGIA [None]
  - RESTLESS LEGS SYNDROME [None]
